FAERS Safety Report 5286042-5 (Version None)
Quarter: 2007Q1

REPORT INFORMATION
  Report Type: 
  Country: None (occurrence: None)
  Receive Date: 20070329
  Receipt Date: 20070313
  Transmission Date: 20070707
  Serious: Yes (Hospitalization)
  Sender: FDA-Public Use
  Company Number: 310001L07USA

PATIENT
  Age: 27 Year
  Sex: Female

DRUGS (4)
  1. GONAL-F [Suspect]
     Indication: IN VITRO FERTILISATION
     Dosage: SEE IMAGE
  2. CHORIONIC GONADOTROPIN (CHORIONIC GONADOTROPHIN) [Suspect]
     Indication: IN VITRO FERTILISATION
     Dosage: 10000 IU, ONCE
  3. LUPRON [Suspect]
     Indication: IN VITRO FERTILISATION
     Dosage: 0.05 ML, 1 IN1 DAYS
  4. REPRONEX [Suspect]
     Indication: IN VITRO FERTILISATION
     Dosage: 75 IU, 1 IN 1 DAYS

REACTIONS (9)
  - HYDRONEPHROSIS [None]
  - HYDROURETER [None]
  - NAUSEA [None]
  - OVARIAN ENLARGEMENT [None]
  - OVARIAN HYPERSTIMULATION SYNDROME [None]
  - PAIN [None]
  - URETERIC OBSTRUCTION [None]
  - VOMITING [None]
  - WHITE BLOOD CELL COUNT INCREASED [None]
